FAERS Safety Report 5628550-0 (Version None)
Quarter: 2008Q1

REPORT INFORMATION
  Report Type: 
  Country: None (occurrence: None)
  Receive Date: 20080214
  Receipt Date: 20080214
  Transmission Date: 20080703
  Serious: Yes (Other)
  Sender: FDA-Public Use
  Company Number: None

PATIENT
  Age: 71 Year
  Sex: Female
  Weight: 62.1428 kg

DRUGS (3)
  1. CHANTIX [Suspect]
     Indication: SMOKING CESSATION THERAPY
     Dates: start: 20070918
  2. MICARDIS HCTZ 40/12.5 [Concomitant]
  3. PRAVASTATIN [Concomitant]

REACTIONS (9)
  - AGITATION [None]
  - ANOREXIA [None]
  - ANXIETY [None]
  - DRUG INTOLERANCE [None]
  - DRUG WITHDRAWAL SYNDROME [None]
  - INSOMNIA [None]
  - IRRITABILITY [None]
  - PHOTOPSIA [None]
  - VITREOUS FLOATERS [None]
